FAERS Safety Report 7778355-X (Version None)
Quarter: 2011Q3

REPORT INFORMATION
  Report Type: 
  Country: None (occurrence: None)
  Receive Date: 20110926
  Receipt Date: 20110920
  Transmission Date: 20111222
  Serious: Yes (Hospitalization)
  Sender: FDA-Public Use
  Company Number: PHHO2011TN16093

PATIENT
  Sex: Female
  Weight: 60 kg

DRUGS (7)
  1. EVEROLIMUS [Suspect]
     Dosage: UNK
     Route: 048
     Dates: start: 20110916
  2. TRANSFUSIONS [Concomitant]
     Indication: ANAEMIA
     Dosage: UNK
     Dates: start: 20110828
  3. ATORVASTATIN [Concomitant]
     Indication: HYPERTENSION
     Dosage: UNK
     Dates: start: 20050101
  4. IRBESARTAN [Concomitant]
     Indication: HYPERCHOLESTEROLAEMIA
     Dosage: UNK
     Dates: start: 20080101
  5. EVEROLIMUS [Suspect]
     Indication: METASTATIC RENAL CELL CARCINOMA
     Dosage: 10 MG, QD
     Route: 048
     Dates: start: 20110414, end: 20110816
  6. EVEROLIMUS [Suspect]
     Dosage: 5 MG, QD
     Route: 048
     Dates: start: 20110817, end: 20110907
  7. BETAXOLOL [Concomitant]
     Indication: HYPERTENSION
     Dosage: UNK
     Dates: start: 20050101

REACTIONS (5)
  - GASTRIC DISORDER [None]
  - DIARRHOEA [None]
  - FATIGUE [None]
  - DECREASED APPETITE [None]
  - TACHYCARDIA [None]
